FAERS Safety Report 11894036 (Version 2)
Quarter: 2016Q1

REPORT INFORMATION
  Report Type: Report from Study
  Country: US (occurrence: US)
  Receive Date: 20160107
  Receipt Date: 20160112
  Transmission Date: 20160526
  Serious: Yes (Death, Hospitalization)
  Sender: FDA-Public Use
  Company Number: US-EXELIXIS-XL18415005906

PATIENT
  Age: 61 Year
  Sex: Female

DRUGS (2)
  1. XL184 [Suspect]
     Active Substance: CABOZANTINIB
     Indication: OVARIAN EPITHELIAL CANCER
     Dosage: 60 MG, QD
     Route: 048
     Dates: start: 20150724, end: 2015
  2. XL184 [Suspect]
     Active Substance: CABOZANTINIB
     Dosage: 40 MG, QD
     Route: 048
     Dates: start: 2015, end: 20150905

REACTIONS (4)
  - Pleural effusion [Unknown]
  - Abdominal pain [Unknown]
  - Embolism [Fatal]
  - Dyspnoea [Unknown]

NARRATIVE: CASE EVENT DATE: 20150906
